FAERS Safety Report 10026309 (Version 1)
Quarter: 2014Q1

REPORT INFORMATION
  Report Type: Spontaneous
  Country: US (occurrence: US)
  Receive Date: 20140321
  Receipt Date: 20140321
  Transmission Date: 20141002
  Serious: No
  Sender: FDA-Public Use
  Company Number: US-009507513-1403USA009327

PATIENT
  Sex: Male

DRUGS (8)
  1. PEGINTRON [Suspect]
     Indication: HEPATITIS C
     Dosage: STRENGHT: 120 MCG/.5 CC, 0.4 CC, QW
     Route: 058
     Dates: start: 20140313
  2. REBETOL [Suspect]
     Indication: HEPATITIS C
     Dosage: 600 AM/400 PM, BID
     Route: 048
     Dates: start: 20140313
  3. SOVALDI [Concomitant]
     Dosage: 1 DF, QD
     Route: 048
  4. BYSTOLIC [Concomitant]
     Dosage: 1 DF, QD
     Route: 048
  5. GLUCOPHAGE [Concomitant]
     Dosage: 1 DF, QD
     Route: 048
  6. CRESTOR [Concomitant]
     Dosage: 1 DF, QW
     Route: 048
  7. CALCIUM (UNSPECIFIED) (+) VITAMIN D (UNSPECIFIED) [Concomitant]
     Dosage: 1 DF, BID
     Route: 048
  8. FISH OIL [Concomitant]
     Dosage: 1 DF, BID
     Route: 048

REACTIONS (4)
  - Fatigue [Unknown]
  - Asthenia [Unknown]
  - Lethargy [Unknown]
  - Injection site erythema [Unknown]
